FAERS Safety Report 5450546-2 (Version None)
Quarter: 2007Q3

REPORT INFORMATION
  Report Type: 
  Country: None (occurrence: None)
  Receive Date: 20070910
  Receipt Date: 20070827
  Transmission Date: 20080115
  Serious: Yes (Other)
  Sender: FDA-Public Use
  Company Number: 232059K07USA

PATIENT
  Age: 50 Year
  Sex: Female

DRUGS (3)
  1. REBIF [Suspect]
     Indication: MULTIPLE SCLEROSIS
     Dosage: 44 MCG, 3 IN WEEKS, SUBCUTANEOUS
     Route: 058
     Dates: start: 20050101
  2. ANTI-DEPRESSANT (ANTIDEPRESSANTS) [Concomitant]
  3. STEROIDS (CORTICOSTEROIDS) [Concomitant]

REACTIONS (10)
  - BONE PAIN [None]
  - FALL [None]
  - FIBULA FRACTURE [None]
  - FRACTURE DELAYED UNION [None]
  - GOITRE [None]
  - HIP FRACTURE [None]
  - HYPERPARATHYROIDISM [None]
  - HYPOAESTHESIA [None]
  - PELVIC FRACTURE [None]
  - SPINAL FRACTURE [None]
